FAERS Safety Report 5877375-X (Version None)
Quarter: 2008Q3

REPORT INFORMATION
  Report Type: 
  Country: None (occurrence: None)
  Receive Date: 20080908
  Receipt Date: 20080821
  Transmission Date: 20090109
  Serious: Yes (Other)
  Sender: FDA-Public Use
  Company Number: 8033043

PATIENT
  Age: 15 Year
  Sex: Female
  Weight: 60 kg

DRUGS (4)
  1. KEPPRA [Suspect]
     Dosage: 250 MG 3/D PO
     Route: 048
     Dates: start: 20080404, end: 20080603
  2. LAMOTRIGINE [Concomitant]
  3. CLOBAZAM [Concomitant]
  4. CARBAMAZEPINE [Concomitant]

REACTIONS (2)
  - INTENTIONAL SELF-INJURY [None]
  - MOOD ALTERED [None]
